FAERS Safety Report 7125623-0 (Version None)
Quarter: 2010Q4

REPORT INFORMATION
  Report Type: 
  Country: None (occurrence: None)
  Receive Date: 20101129
  Receipt Date: 20101117
  Transmission Date: 20110411
  Serious: Yes (Hospitalization)
  Sender: FDA-Public Use
  Company Number: ZA-ASTRAZENECA-2010SE55118

PATIENT
  Sex: Male

DRUGS (4)
  1. MEROPENEM [Suspect]
     Route: 042
  2. EPILIM IV [Interacting]
     Dosage: 36MG/KG
     Route: 042
  3. LAMICIN [Concomitant]
  4. RIVOTRIL [Concomitant]

REACTIONS (2)
  - CONVULSION [None]
  - DRUG INTERACTION [None]
